FAERS Safety Report 16219164 (Version 2)
Quarter: 2019Q3

REPORT INFORMATION
  Report Type: Report from Study
  Country: US (occurrence: US)
  Receive Date: 20190419
  Receipt Date: 20190702
  Transmission Date: 20191004
  Serious: Yes (Hospitalization)
  Sender: FDA-Public Use
  Company Number: US-ACTELION-A-US2017-152592

PATIENT
  Age: 78 Year
  Sex: Female

DRUGS (6)
  1. PHENYLEPHRINE [Concomitant]
     Active Substance: PHENYLEPHRINE HYDROCHLORIDE
  2. BIOGEN [Concomitant]
     Dosage: 500 MCG, QD
     Dates: start: 2014
  3. XARELTO [Concomitant]
     Active Substance: RIVAROXABAN
     Dosage: 20 MG, QD
     Dates: start: 2014
  4. ADEMPAS [Concomitant]
     Active Substance: RIOCIGUAT
     Dosage: 2.5 MG, TID
     Dates: start: 2014
  5. LEVOTHYROXINE. [Concomitant]
     Active Substance: LEVOTHYROXINE
     Dosage: 100 MCG, QD
     Dates: start: 2014
  6. OPSUMIT [Suspect]
     Active Substance: MACITENTAN
     Indication: PULMONARY HYPERTENSION
     Dosage: 10 MG, QD
     Route: 048
     Dates: start: 20161226

REACTIONS (14)
  - Haemorrhoids [Recovered/Resolved]
  - Haemorrhoidal haemorrhage [Unknown]
  - Feeling abnormal [Not Recovered/Not Resolved]
  - Anaemia [Unknown]
  - Rectal haemorrhage [Recovered/Resolved]
  - Blood pressure abnormal [Not Recovered/Not Resolved]
  - Weight increased [Not Recovered/Not Resolved]
  - Loss of consciousness [Not Recovered/Not Resolved]
  - Haemoglobin decreased [Recovered/Resolved with Sequelae]
  - Haemorrhage [Unknown]
  - Dizziness [Not Recovered/Not Resolved]
  - Hospitalisation [Unknown]
  - Packed red blood cell transfusion [Recovered/Resolved with Sequelae]
  - Blood iron decreased [Recovering/Resolving]

NARRATIVE: CASE EVENT DATE: 20170326
